FAERS Safety Report 9704539 (Version 1)
Quarter: 2013Q4

REPORT INFORMATION
  Report Type: Spontaneous
  Country: US (occurrence: None)
  Receive Date: 20131121
  Receipt Date: 20131121
  Transmission Date: 20140711
  Serious: Yes (Other)
  Sender: FDA-Public Use
  Company Number: None

PATIENT
  Age: 70 Year
  Sex: Female
  Weight: 101.61 kg

DRUGS (1)
  1. XARELTO [Suspect]
     Route: 048
     Dates: start: 20130917, end: 20131022

REACTIONS (7)
  - Liver function test abnormal [None]
  - Hypoalbuminaemia [None]
  - Leukocytosis [None]
  - Body temperature increased [None]
  - Thrombocytosis [None]
  - Abnormal loss of weight [None]
  - Cardiac failure congestive [None]
